FAERS Safety Report 6206828-X (Version None)
Quarter: 2009Q2

REPORT INFORMATION
  Report Type: 
  Country: None (occurrence: None)
  Receive Date: 20090518
  Receipt Date: 20090122
  Transmission Date: 20091009
  Serious: No
  Sender: FDA-Public Use
  Company Number: WAES 0901USA03278

PATIENT
  Age: 61 Year
  Sex: Female

DRUGS (11)
  1. JANUVIA [Suspect]
     Indication: DIABETES MELLITUS
     Dosage: 100 MG/DAILY/PO
     Route: 048
     Dates: start: 20081101, end: 20081231
  2. JANUVIA [Suspect]
     Indication: DIABETES MELLITUS
     Dosage: 100 MG/DAILY/PO
     Route: 048
     Dates: start: 20090101, end: 20090114
  3. CALAN [Concomitant]
  4. LASIX [Concomitant]
  5. SYNTHROID [Concomitant]
  6. XANAX [Concomitant]
  7. ZOCOR [Concomitant]
  8. ZOLOFT [Concomitant]
  9. GLYBURIDE [Concomitant]
  10. METFORMIN HYDROCHLORIDE [Concomitant]
  11. POTASSIUM CHLORIDE [Concomitant]

REACTIONS (4)
  - EYE PRURITUS [None]
  - RASH [None]
  - ROSACEA [None]
  - VISION BLURRED [None]
